FAERS Safety Report 6719859-8 (Version None)
Quarter: 2010Q2

REPORT INFORMATION
  Report Type: 
  Country: None (occurrence: None)
  Receive Date: 20100511
  Receipt Date: 20100503
  Transmission Date: 20101027
  Serious: Yes (Other)
  Sender: FDA-Public Use
  Company Number: PHHY2010CA01141

PATIENT
  Sex: Male

DRUGS (1)
  1. SANDOSTATIN LAR [Suspect]
     Indication: IRRITABLE BOWEL SYNDROME
     Dosage: 20 MG, QMO
     Route: 030
     Dates: start: 20090320, end: 20100310

REACTIONS (2)
  - INFLUENZA [None]
  - SURGERY [None]
